FAERS Safety Report 7525607-4 (Version None)
Quarter: 2011Q2

REPORT INFORMATION
  Report Type: 
  Country: None (occurrence: None)
  Receive Date: 20110602
  Receipt Date: 20110602
  Transmission Date: 20111010
  Serious: Yes (Life-Threatening, Hospitalization, Other)
  Sender: FDA-Public Use
  Company Number: None

PATIENT
  Age: 65 Year
  Sex: Male
  Weight: 80 kg

DRUGS (2)
  1. SIMVASTATIN [Suspect]
     Indication: HYPERLIPIDAEMIA
     Dosage: 80MG EVERY DAY PO
     Route: 048
     Dates: start: 20100204, end: 20110516
  2. GEMFIBROZIL [Suspect]
     Dosage: 600MG BID PO
     Route: 048
     Dates: start: 20101027, end: 20110516

REACTIONS (7)
  - HAEMODIALYSIS [None]
  - TROPONIN INCREASED [None]
  - DYSPHONIA [None]
  - RHABDOMYOLYSIS [None]
  - SINUS TACHYCARDIA [None]
  - RENAL FAILURE ACUTE [None]
  - CRYSTAL URINE PRESENT [None]
